FAERS Safety Report 6217308-X (Version None)
Quarter: 2009Q2

REPORT INFORMATION
  Report Type: 
  Country: None (occurrence: None)
  Receive Date: 20090608
  Receipt Date: 20090528
  Transmission Date: 20091009
  Serious: Yes (Other)
  Sender: FDA-Public Use
  Company Number: US-PFIZER INC-2005120967

PATIENT
  Sex: Female
  Weight: 68 kg

DRUGS (8)
  1. PROVERA [Suspect]
     Indication: HORMONE REPLACEMENT THERAPY
     Route: 048
     Dates: start: 19750101, end: 19960101
  2. MEDROXYPROGESTERONE AND MEDROXYPROGESTERONE ACETATE [Suspect]
     Indication: HORMONE REPLACEMENT THERAPY
     Dosage: UNK
     Route: 065
     Dates: start: 19921001, end: 19960501
  3. MEDROXYPROGESTERONE ACETATE [Suspect]
     Indication: HORMONE REPLACEMENT THERAPY
     Dosage: UNK
     Dates: start: 19921001, end: 19960501
  4. CYCRIN [Suspect]
     Indication: HORMONE REPLACEMENT THERAPY
     Dosage: UNK
     Route: 065
     Dates: start: 19940101, end: 19951001
  5. PREMARIN [Suspect]
     Indication: HORMONE REPLACEMENT THERAPY
     Route: 065
     Dates: start: 19750101, end: 19960101
  6. NORTRIPTYLINE [Concomitant]
     Indication: INSOMNIA
     Dosage: UNK
     Dates: start: 19900101
  7. NORTRIPTYLINE [Concomitant]
     Indication: ANTIDEPRESSANT THERAPY
  8. BUSPAR [Concomitant]

REACTIONS (1)
  - BREAST CANCER [None]
